FAERS Safety Report 8272336-8 (Version None)
Quarter: 2012Q2

REPORT INFORMATION
  Report Type: 
  Country: None (occurrence: None)
  Receive Date: 20120410
  Receipt Date: 20120409
  Transmission Date: 20120825
  Serious: No
  Sender: FDA-Public Use
  Company Number: US-B.I. PHARMACEUTICALS,INC./RIDGEFIELD-2012-BP-04159BP

PATIENT
  Sex: Female
  Weight: 76.66 kg

DRUGS (3)
  1. PRADAXA [Suspect]
     Indication: ATRIAL FIBRILLATION
     Dosage: 300 MG
     Route: 048
     Dates: start: 20120222, end: 20120225
  2. DIGOXIN [Concomitant]
  3. NIASPAN [Concomitant]
     Indication: BLOOD CHOLESTEROL ABNORMAL

REACTIONS (6)
  - HALLUCINATION [None]
  - VOMITING [None]
  - HEADACHE [None]
  - ASTHENIA [None]
  - LOWER GASTROINTESTINAL HAEMORRHAGE [None]
  - HAEMATOCHEZIA [None]
